FAERS Safety Report 24199355 (Version 9)
Quarter: 2025Q1

REPORT INFORMATION
  Report Type: Report from Study
  Country: DE (occurrence: DE)
  Receive Date: 20240812
  Receipt Date: 20250225
  Transmission Date: 20250409
  Serious: Yes (Hospitalization, Other)
  Sender: UCB
  Company Number: DE-UCBSA-2024038423

PATIENT
  Age: 42 Year
  Sex: Male
  Weight: 120 kg

DRUGS (4)
  1. BIMEKIZUMAB [Suspect]
     Active Substance: BIMEKIZUMAB
     Indication: Psoriatic arthropathy
     Dosage: 160 MILLIGRAM, EV 4 WEEKS (NO. OF DOSES RECEIVED: 3)
     Route: 058
     Dates: start: 20240507, end: 20240703
  2. ETORICOXIB [Concomitant]
     Active Substance: ETORICOXIB
     Indication: Inflammatory pain
     Dosage: 90 MILLIGRAM, ONCE DAILY (QD) (3 DAYS)
     Route: 048
     Dates: start: 20131108
  3. ETORICOXIB [Concomitant]
     Active Substance: ETORICOXIB
     Indication: Psoriatic arthropathy
  4. ENBREL [Concomitant]
     Active Substance: ETANERCEPT
     Indication: Product used for unknown indication
     Dates: start: 20160606, end: 202404

REACTIONS (1)
  - Psoriatic arthropathy [Recovered/Resolved]

NARRATIVE: CASE EVENT DATE: 20240710
